FAERS Safety Report 14582250 (Version 16)
Quarter: 2023Q2

REPORT INFORMATION
  Report Type: Spontaneous
  Country: PL (occurrence: PL)
  Receive Date: 20180228
  Receipt Date: 20230620
  Transmission Date: 20230722
  Serious: Yes (Death, Hospitalization, Other)
  Sender: FDA-Public Use
  Company Number: PL-JNJFOC-20180130902

PATIENT
  Age: 56 Year
  Sex: Female

DRUGS (29)
  1. BORTEZOMIB [Suspect]
     Active Substance: BORTEZOMIB
     Indication: Plasma cell myeloma
     Dosage: QCYCLE, CTD REGIMEN, VD-PACE
     Route: 065
  2. BORTEZOMIB [Suspect]
     Active Substance: BORTEZOMIB
     Indication: Chemotherapy
     Dosage: DOSAGE FORM: LYOPHILIZED POWDER, 2 CYCLES
     Route: 065
  3. CISPLATIN [Suspect]
     Active Substance: CISPLATIN
     Indication: Plasma cell myeloma
     Dosage: UNK, CYCLE,QCYCLE, VD-PACE
     Route: 065
  4. CISPLATIN [Suspect]
     Active Substance: CISPLATIN
     Indication: Chemotherapy
     Dosage: UNK (VD-PACE)
     Route: 065
  5. DEXAMETHASONE [Suspect]
     Active Substance: DEXAMETHASONE
     Indication: Plasma cell myeloma
     Dosage: CYCLE,VD-PACE, CTD REGIMENUNK,
     Route: 065
  6. DEXAMETHASONE [Suspect]
     Active Substance: DEXAMETHASONE
     Indication: Chemotherapy
     Dosage: UNK, CYCLE
     Route: 065
  7. MELPHALAN [Suspect]
     Active Substance: MELPHALAN
     Indication: Plasma cell myeloma
     Dosage: 120 MG, UNK HIGH DOSE
     Route: 065
  8. MELPHALAN [Suspect]
     Active Substance: MELPHALAN
     Indication: Bone marrow conditioning regimen
     Dosage: UNK
     Route: 065
  9. MELPHALAN [Suspect]
     Active Substance: MELPHALAN
     Dosage: 120 MILLIGRAM
     Route: 065
  10. ETOPOSIDE [Suspect]
     Active Substance: ETOPOSIDE
     Indication: Plasma cell myeloma
     Dosage: UNK, QCYCLE; UNSPECIFIED, VD-PACE
     Route: 065
  11. ETOPOSIDE [Suspect]
     Active Substance: ETOPOSIDE
     Indication: Chemotherapy
     Dosage: UNK, CYCLE
     Route: 065
  12. DOXORUBICIN [Suspect]
     Active Substance: DOXORUBICIN
     Indication: Plasma cell myeloma
     Dosage: UNK, CYCLE, (VD-PACE)
     Route: 065
  13. DOXORUBICIN [Suspect]
     Active Substance: DOXORUBICIN
     Indication: Chemotherapy
  14. BENDAMUSTINE HYDROCHLORIDE [Suspect]
     Active Substance: BENDAMUSTINE HYDROCHLORIDE
     Indication: Plasma cell myeloma
     Dosage: UNK, CYCLE
     Route: 042
  15. BENDAMUSTINE HYDROCHLORIDE [Suspect]
     Active Substance: BENDAMUSTINE HYDROCHLORIDE
     Dosage: UNK
     Route: 065
  16. FLUCONAZOLE [Suspect]
     Active Substance: FLUCONAZOLE
     Indication: Product used for unknown indication
     Dosage: UNK
     Route: 065
  17. CYCLOPHOSPHAMIDE [Suspect]
     Active Substance: CYCLOPHOSPHAMIDE
     Indication: Plasma cell myeloma
     Dosage: CYCLE, QCYCLE, CTD REGIMEN
     Route: 065
  18. CYCLOPHOSPHAMIDE [Suspect]
     Active Substance: CYCLOPHOSPHAMIDE
     Indication: Chemotherapy
     Dosage: (VD-PACE)UNK
     Route: 065
  19. HUMAN IMMUNOGLOBULIN G [Suspect]
     Active Substance: HUMAN IMMUNOGLOBULIN G
     Indication: Product used for unknown indication
     Dosage: UNK
     Route: 065
  20. LENALIDOMIDE [Suspect]
     Active Substance: LENALIDOMIDE
     Indication: Plasma cell myeloma
     Dosage: UNK, CYCLE
     Route: 065
  21. LENALIDOMIDE [Suspect]
     Active Substance: LENALIDOMIDE
     Dosage: UNK
     Route: 065
  22. MICAFUNGIN [Suspect]
     Active Substance: MICAFUNGIN SODIUM
     Indication: Candida infection
     Dosage: 200 MG, QD
     Route: 065
  23. MICAFUNGIN [Suspect]
     Active Substance: MICAFUNGIN SODIUM
     Dosage: 100 MG, QD
     Route: 065
  24. MICAFUNGIN [Suspect]
     Active Substance: MICAFUNGIN SODIUM
     Dosage: UNK
     Route: 065
  25. THALIDOMIDE [Suspect]
     Active Substance: THALIDOMIDE
     Indication: Chemotherapy
     Dosage: UNSPECIFIED, CTD REGIMEN
     Route: 065
  26. THALIDOMIDE [Suspect]
     Active Substance: THALIDOMIDE
     Dosage: UNK
     Route: 065
  27. CYCLOPHOSPHAMIDE [Suspect]
     Active Substance: CYCLOPHOSPHAMIDE
     Indication: Plasma cell myeloma
     Dosage: UNK, CYCLE,UNK (VD-PACE)
     Route: 065
  28. CYCLOPHOSPHAMIDE [Suspect]
     Active Substance: CYCLOPHOSPHAMIDE
     Indication: Chemotherapy
     Dosage: UNK, CYCLE
     Route: 065
  29. DEXAMETHASONE [Concomitant]
     Active Substance: DEXAMETHASONE
     Indication: Plasma cell myeloma
     Dosage: UNK, CYCLE
     Route: 065

REACTIONS (26)
  - Plasma cell myeloma [Fatal]
  - Plasma cell leukaemia [Fatal]
  - Malignant neoplasm progression [Fatal]
  - Disease progression [Fatal]
  - Mucosal erosion [Fatal]
  - Mucosal inflammation [Fatal]
  - Pain [Fatal]
  - Sinus polyp [Fatal]
  - Acute sinusitis [Fatal]
  - Abscess [Fatal]
  - Fungal oesophagitis [Fatal]
  - Candida infection [Fatal]
  - Oral fungal infection [Fatal]
  - Varicella zoster virus infection [Fatal]
  - Gastrointestinal fungal infection [Fatal]
  - Nasal abscess [Fatal]
  - Herpes zoster [Fatal]
  - Oral disorder [Fatal]
  - Sepsis [Fatal]
  - Fungal infection [Fatal]
  - Enterococcal sepsis [Fatal]
  - Pancytopenia [Fatal]
  - Sinusitis [Fatal]
  - Pneumonia fungal [Fatal]
  - Bacterial sepsis [Unknown]
  - Enterococcal infection [Unknown]

NARRATIVE: CASE EVENT DATE: 20170101
